FAERS Safety Report 5815379-3 (Version None)
Quarter: 2008Q3

REPORT INFORMATION
  Report Type: 
  Country: None (occurrence: None)
  Receive Date: 20080718
  Receipt Date: 20080707
  Transmission Date: 20090109
  Serious: No
  Sender: FDA-Public Use
  Company Number: US-PFIZER INC-2008045826

PATIENT
  Sex: Female

DRUGS (2)
  1. XANAX [Suspect]
  2. DURAGESIC-100 [Concomitant]

REACTIONS (1)
  - NO ADVERSE EVENT [None]
